FAERS Safety Report 5283964-6 (Version None)
Quarter: 2007Q2

REPORT INFORMATION
  Report Type: 
  Country: None (occurrence: None)
  Receive Date: 20070402
  Receipt Date: 20070315
  Transmission Date: 20071010
  Serious: Yes (Death, Hospitalization, Other)
  Sender: FDA-Public Use
  Company Number: US-PFIZER INC-2007001959

PATIENT
  Sex: Male
  Weight: 72.6 kg

DRUGS (4)
  1. BEXTRA [Suspect]
     Indication: BACK PAIN
     Route: 048
     Dates: start: 20031213, end: 20041001
  2. BEXTRA [Suspect]
     Indication: ARTHRITIS
  3. BEXTRA [Suspect]
     Indication: SCIATICA
  4. BEXTRA [Suspect]
     Indication: PAIN IN EXTREMITY

REACTIONS (4)
  - ARTHRITIS [None]
  - HYPERTENSION [None]
  - MYOCARDIAL INFARCTION [None]
  - RASH [None]
